FAERS Safety Report 13882419 (Version 3)
Quarter: 2018Q4

REPORT INFORMATION
  Report Type: Report from Study
  Country: US (occurrence: US)
  Receive Date: 20170818
  Receipt Date: 20181211
  Transmission Date: 20190204
  Serious: Yes (Other)
  Sender: FDA-Public Use
  Company Number: PHEH2017US026261

PATIENT
  Sex: Female
  Weight: 95.5 kg

DRUGS (1)
  1. GILENYA [Suspect]
     Active Substance: FINGOLIMOD HYDROCHLORIDE
     Indication: MULTIPLE SCLEROSIS
     Dosage: 0.5 MG, QD
     Route: 048
     Dates: start: 20170801

REACTIONS (5)
  - Lymphocyte count decreased [Unknown]
  - Vision blurred [Unknown]
  - Tremor [Unknown]
  - Anxiety [Unknown]
  - Multiple sclerosis relapse [Unknown]
